FAERS Safety Report 5959951-9 (Version None)
Quarter: 2008Q4

REPORT INFORMATION
  Report Type: 
  Country: None (occurrence: None)
  Receive Date: 20081112
  Receipt Date: 20080604
  Transmission Date: 20090506
  Serious: Yes (Other)
  Sender: FDA-Public Use
  Company Number: US-JNJFOC-20080602174

PATIENT
  Sex: Female
  Weight: 92.0802 kg

DRUGS (6)
  1. IBUPROFEN TABLETS [Suspect]
     Indication: ARTHRITIS
     Dosage: 800 MG EVERY 6-8 HOURS
  2. IBUPROFEN TABLETS [Suspect]
     Indication: FIBROMYALGIA
     Dosage: 800 MG EVERY 6-8 HOURS
  3. CYMBALTA [Concomitant]
  4. PROZAC [Concomitant]
  5. WELBUTRIN (BUPROPION HYDROCHLORIDE) [Concomitant]
  6. VICODIN [Concomitant]

REACTIONS (1)
  - HYPERTENSION [None]
